FAERS Safety Report 4332443-9 (Version None)
Quarter: 2004Q2

REPORT INFORMATION
  Report Type: 
  Country: None (occurrence: None)
  Receive Date: 20040401
  Receipt Date: 20040317
  Transmission Date: 20050107
  Serious: Yes (Life-Threatening, Hospitalization)
  Sender: FDA-Public Use
  Company Number: 2001-FF-S0033

PATIENT
  Age: 2 Day
  Sex: Female

DRUGS (2)
  1. MICARDIS (TA) [Suspect]
     Indication: HYPERTENSION
     Dosage: MG (MG, 1 TA/DAY)
     Route: 015
     Dates: end: 20010115
  2. ALDOMET (METHYLDOPA) (UNK) [Concomitant]

REACTIONS (14)
  - ANURIA [None]
  - BRONCHIOLITIS [None]
  - CAESAREAN SECTION [None]
  - FEEDING PROBLEM IN NEWBORN [None]
  - FOETAL GROWTH RETARDATION [None]
  - FOETAL HEART RATE ABNORMAL [None]
  - GROWTH RETARDATION [None]
  - HYPOGLYCAEMIA NEONATAL [None]
  - KIDNEY SMALL [None]
  - MATERNAL DRUGS AFFECTING FOETUS [None]
  - NEONATAL DISORDER [None]
  - OLIGOHYDRAMNIOS [None]
  - PREMATURE BABY [None]
  - RENAL FAILURE NEONATAL [None]
